FAERS Safety Report 5285917-0 (Version None)
Quarter: 2007Q1

REPORT INFORMATION
  Report Type: 
  Country: None (occurrence: None)
  Receive Date: 20070328
  Receipt Date: 20070316
  Transmission Date: 20070707
  Serious: Yes (Other)
  Sender: FDA-Public Use
  Company Number: VER_0048_2007

PATIENT
  Age: 41 Year
  Sex: Male

DRUGS (1)
  1. EPINEPHRINE [Suspect]
     Dosage: 0.5 MG ONCE SC
     Route: 058

REACTIONS (1)
  - MYOCARDIAL INFARCTION [None]
